FAERS Safety Report 13166133 (Version 1)
Quarter: 2017Q1

REPORT INFORMATION
  Report Type: Spontaneous
  Country: US (occurrence: US)
  Receive Date: 20170127
  Receipt Date: 20170127
  Transmission Date: 20170428
  Serious: Yes (Hospitalization)
  Sender: FDA-Public Use
  Company Number: None

PATIENT
  Age: 51 Year
  Sex: Female
  Weight: 100.9 kg

DRUGS (2)
  1. CYCLOPHOSPHAMIDE. [Suspect]
     Active Substance: CYCLOPHOSPHAMIDE
     Dates: end: 20170110
  2. DOXORUBICIN HYDROCHLORIDE. [Suspect]
     Active Substance: DOXORUBICIN HYDROCHLORIDE
     Dates: end: 20170110

REACTIONS (6)
  - Pyrexia [None]
  - Myalgia [None]
  - Pulmonary embolism [None]
  - Bacteraemia [None]
  - Computerised tomogram thorax abnormal [None]
  - Hypotension [None]

NARRATIVE: CASE EVENT DATE: 20170117
